FAERS Safety Report 23427472 (Version 1)
Quarter: 2024Q1

REPORT INFORMATION
  Report Type: Spontaneous
  Country: US (occurrence: US)
  Receive Date: 20240122
  Receipt Date: 20240122
  Transmission Date: 20240410
  Serious: No
  Sender: FDA-Public Use
  Company Number: US-ABBVIE-5598908

PATIENT
  Sex: Female

DRUGS (1)
  1. DIVALPROEX SODIUM [Suspect]
     Active Substance: DIVALPROEX SODIUM
     Indication: Seizure
     Dosage: DIVALPROEX SODIUM DR?FORM STRENGTH: 125 MILLIGRAM?START DATE TEXT: 21 YEARS AGO
     Route: 065

REACTIONS (1)
  - Influenza [Unknown]
